FAERS Safety Report 21620895 (Version 6)
Quarter: 2023Q1

REPORT INFORMATION
  Report Type: Report from Study
  Country: US (occurrence: US)
  Receive Date: 20221121
  Receipt Date: 20230325
  Transmission Date: 20230417
  Serious: Yes (Hospitalization)
  Sender: FDA-Public Use
  Company Number: US-002147023-NVSC2022US261184

PATIENT
  Sex: Female

DRUGS (1)
  1. ENTRESTO [Suspect]
     Active Substance: SACUBITRIL\VALSARTAN
     Indication: Product used for unknown indication
     Dosage: 2.5 DOSAGE FORM, BID (1 PILL OF 49/51MG IN THE MORNING AND 1 AND 1/2 OF A PILL IN THE EVENING)
     Route: 065

REACTIONS (3)
  - Atrial fibrillation [Unknown]
  - Wrong technique in product usage process [Unknown]
  - Heart rate increased [Unknown]
